FAERS Safety Report 6580774-4 (Version None)
Quarter: 2010Q1

REPORT INFORMATION
  Report Type: 
  Country: None (occurrence: None)
  Receive Date: 20100213
  Receipt Date: 20100201
  Transmission Date: 20100710
  Serious: Yes (Hospitalization)
  Sender: FDA-Public Use
  Company Number: JP-ELI_LILLY_AND_COMPANY-JP201002001768

PATIENT
  Sex: Female
  Weight: 2.1 kg

DRUGS (5)
  1. HUMALOG [Suspect]
     Dosage: 6 U, 3/D
     Route: 064
     Dates: start: 20090929, end: 20091019
  2. HUMALOG [Suspect]
     Dosage: 7 U, 3/D
     Route: 064
     Dates: start: 20091020, end: 20091121
  3. UTEMERIN [Concomitant]
     Dosage: 15 MG, UNK
     Route: 064
     Dates: start: 20090925, end: 20091022
  4. TOKISYAKUYAKUSAN [Concomitant]
     Dosage: 6 G, UNK
     Route: 064
     Dates: start: 20091029
  5. KEFRAL [Concomitant]
     Route: 064
     Dates: start: 20091120, end: 20091121

REACTIONS (4)
  - DRUG EXPOSURE DURING PREGNANCY [None]
  - DRUG EXPOSURE VIA BREAST MILK [None]
  - PREMATURE BABY [None]
  - SMALL FOR DATES BABY [None]
